FAERS Safety Report 22613726 (Version 1)
Quarter: 2023Q2

REPORT INFORMATION
  Report Type: Report from Study
  Country: US (occurrence: US)
  Receive Date: 20230619
  Receipt Date: 20230619
  Transmission Date: 20230721
  Serious: Yes (Hospitalization)
  Sender: FDA-Public Use
  Company Number: US-ACADIA PHARMACEUTICALS INC.-ACA-2023-PIM-002091

PATIENT
  Age: 75 Year
  Sex: Male

DRUGS (17)
  1. NUPLAZID [Suspect]
     Active Substance: PIMAVANSERIN TARTRATE
     Indication: Parkinson^s disease psychosis
     Dosage: 34 MILLIGRAM, QD
     Route: 048
     Dates: start: 20210520
  2. CARVEDILOL [Concomitant]
     Active Substance: CARVEDILOL
  3. DICLOFENAC [Concomitant]
     Active Substance: DICLOFENAC
  4. LEVOTHYROXINE [Concomitant]
     Active Substance: LEVOTHYROXINE
     Dosage: 88 MICROGRAM, QD
  5. LORAZEPAM [Concomitant]
     Active Substance: LORAZEPAM
  6. LOSARTAN [Concomitant]
     Active Substance: LOSARTAN
     Dosage: 50 MILLIGRAM, QD
  7. MELATONIN [Concomitant]
     Active Substance: MELATONIN
     Dosage: 10 MILLIGRAM AT NIGHT
  8. MEMANTINE [Concomitant]
     Active Substance: MEMANTINE
  9. METHOCARBAMOL [Concomitant]
     Active Substance: METHOCARBAMOL
  10. RIVASTIGMINE [RIVASTIGMINE HYDROGEN TARTRATE] [Concomitant]
     Dosage: UNK
     Route: 062
  11. RIVASTIGMINE [RIVASTIGMINE HYDROGEN TARTRATE] [Concomitant]
     Dosage: 9.5 MG DAILY
  12. SERTRALINE [Concomitant]
     Active Substance: SERTRALINE HYDROCHLORIDE
     Dosage: 150 MILLIGRAM AT NIGHT
  13. DOCUSATE SODIUM\SENNOSIDES A AND B [Concomitant]
     Active Substance: DOCUSATE SODIUM\SENNOSIDES A AND B
  14. RISPERIDONE [Concomitant]
     Active Substance: RISPERIDONE
     Dosage: 1.5 MG AT NIGHT
  15. METOPROLOL SUCCINATE [Concomitant]
     Active Substance: METOPROLOL SUCCINATE
     Dosage: 50 MILLIGRAM
  16. IBUPROFEN [Concomitant]
     Active Substance: IBUPROFEN
     Dosage: 400 MILLIGRAM, PRN
  17. VITAMIN D3 [Concomitant]
     Active Substance: CHOLECALCIFEROL
     Dosage: 2000 UNITS DAILY

REACTIONS (2)
  - Upper limb fracture [Recovered/Resolved]
  - Fall [Recovered/Resolved]

NARRATIVE: CASE EVENT DATE: 20230426
